FAERS Safety Report 7278192-9 (Version None)
Quarter: 2011Q1

REPORT INFORMATION
  Report Type: 
  Country: None (occurrence: None)
  Receive Date: 20110207
  Receipt Date: 20110125
  Transmission Date: 20110831
  Serious: Yes (Death)
  Sender: FDA-Public Use
  Company Number: B0697449A

PATIENT
  Age: 70 Year
  Sex: Male

DRUGS (1)
  1. ARIXTRA [Suspect]
     Indication: PULMONARY EMBOLISM
     Dosage: 7.5MG PER DAY
     Route: 058
     Dates: end: 20101201

REACTIONS (3)
  - INTRA-ABDOMINAL HAEMATOMA [None]
  - ANAEMIA [None]
  - UNDERDOSE [None]
